FAERS Safety Report 10736537 (Version 1)
Quarter: 2015Q1

REPORT INFORMATION
  Report Type: Spontaneous
  Country: GB (occurrence: GB)
  Receive Date: 20150126
  Receipt Date: 20150126
  Transmission Date: 20150721
  Serious: Yes (Other)
  Sender: FDA-Public Use
  Company Number: GB-TEVA-535195ISR

PATIENT
  Age: 68 Year
  Sex: Male
  Weight: 66 kg

DRUGS (2)
  1. TERBINAFINE [Suspect]
     Active Substance: TERBINAFINE
     Indication: FUNGAL INFECTION
     Route: 048
     Dates: start: 20140814, end: 201409
  2. COD LIVER OIL [Concomitant]
     Active Substance: COD LIVER OIL

REACTIONS (1)
  - Disturbance in attention [Recovered/Resolved]

NARRATIVE: CASE EVENT DATE: 201409
